FAERS Safety Report 5078191-1 (Version None)
Quarter: 2006Q3

REPORT INFORMATION
  Report Type: 
  Country: None (occurrence: None)
  Receive Date: 20060811
  Receipt Date: 20060720
  Transmission Date: 20061208
  Serious: Yes (Hospitalization)
  Sender: FDA-Public Use
  Company Number: DK-JNJFOC-20051101898

PATIENT
  Sex: Male
  Weight: 49.9 kg

DRUGS (8)
  1. BLINDED; PALIPERIDONE PALMITATE [Suspect]
     Indication: SCHIZOPHRENIA
     Route: 030
     Dates: start: 20050617, end: 20051209
  2. RISPERDAL CONSTA [Suspect]
     Indication: SCHIZOPHRENIA
     Route: 030
     Dates: start: 20050617, end: 20051209
  3. PLACEBO [Suspect]
     Indication: SCHIZOPHRENIA
     Route: 030
  4. RIVOTRIL [Concomitant]
  5. RIVOTRIL [Concomitant]
  6. RIVOTRIL [Concomitant]
  7. RIVOTRIL [Concomitant]
     Indication: PROPHYLAXIS
  8. IMOZOP [Concomitant]

REACTIONS (1)
  - PSYCHOTIC DISORDER [None]
